FAERS Safety Report 4504808-3 (Version None)
Quarter: 2004Q3

REPORT INFORMATION
  Report Type: 
  Country: None (occurrence: None)
  Receive Date: 20040927
  Receipt Date: 20040707
  Transmission Date: 20050211
  Serious: No
  Sender: FDA-Public Use
  Company Number: USA040772028

PATIENT
  Age: 35 Year
  Sex: Female

DRUGS (4)
  1. STRATTERA [Suspect]
     Dosage: 60 MG
  2. ADDERALL 10 [Concomitant]
  3. ACIPHEX [Concomitant]
  4. GLUCOPHAGE [Concomitant]

REACTIONS (1)
  - LEUKOCYTOSIS [None]
